FAERS Safety Report 19758449 (Version 1)
Quarter: 2021Q3

REPORT INFORMATION
  Report Type: Spontaneous
  Country: CN (occurrence: CN)
  Receive Date: 20210827
  Receipt Date: 20210827
  Transmission Date: 20211014
  Serious: Yes (Death, Other)
  Sender: FDA-Public Use
  Company Number: CN-ELI_LILLY_AND_COMPANY-CN202108009626

PATIENT
  Age: 50 Year
  Sex: Female

DRUGS (1)
  1. TRULICITY [Suspect]
     Active Substance: DULAGLUTIDE
     Indication: TYPE 2 DIABETES MELLITUS
     Dosage: 1.5 MG, WEEKLY (1/W)
     Route: 058

REACTIONS (4)
  - Electrolyte imbalance [Not Recovered/Not Resolved]
  - Ketoacidosis [Not Recovered/Not Resolved]
  - Hypotension [Not Recovered/Not Resolved]
  - Death [Fatal]
